FAERS Safety Report 23032278 (Version 1)
Quarter: 2023Q4

REPORT INFORMATION
  Report Type: Spontaneous
  Country: RU (occurrence: None)
  Receive Date: 20231005
  Receipt Date: 20231005
  Transmission Date: 20240110
  Serious: Yes (Death, Hospitalization)
  Sender: FDA-Public Use
  Company Number: RU-Eisai Medical Research-EC-2023-150175

PATIENT
  Age: 58 Year
  Sex: Male

DRUGS (3)
  1. LENVIMA [Suspect]
     Active Substance: LENVATINIB
     Indication: Clear cell renal cell carcinoma
     Route: 048
     Dates: start: 20221229, end: 202301
  2. PEMBROLIZUMAB [Suspect]
     Active Substance: PEMBROLIZUMAB
     Indication: Clear cell renal cell carcinoma
     Route: 041
     Dates: start: 20221229
  3. PREDNISOLONE [Concomitant]
     Active Substance: PREDNISOLONE
     Indication: Hyperthermia
     Dosage: 1 MG/KG OF BODY WEIGHT  (FREQUENCY UNKNOWN)
     Dates: start: 20230117

REACTIONS (4)
  - Deep vein thrombosis [Fatal]
  - Pulmonary embolism [Fatal]
  - Pain in extremity [Unknown]
  - Oedema peripheral [Unknown]

NARRATIVE: CASE EVENT DATE: 20230101
